FAERS Safety Report 6191634-5 (Version None)
Quarter: 2009Q2

REPORT INFORMATION
  Report Type: 
  Country: None (occurrence: None)
  Receive Date: 20090515
  Receipt Date: 20090515
  Transmission Date: 20091009
  Serious: Yes (Life-Threatening, Hospitalization)
  Sender: FDA-Public Use
  Company Number: DE-PFIZER INC-2009180852

PATIENT
  Age: 77 Year

DRUGS (9)
  1. GLIBENCLAMIDE [Interacting]
     Dosage: 1.75 MG, 1X/DAY
     Route: 048
     Dates: start: 20000101, end: 20080727
  2. METFORMIN HCL [Interacting]
     Dosage: 500 MG, 2X/DAY
     Route: 048
     Dates: start: 19950101
  3. LISINOPRIL [Suspect]
     Dosage: 10 MG, 1X/DAY
     Route: 048
     Dates: start: 20030101, end: 20080727
  4. FURORESE [Interacting]
     Indication: RENAL IMPAIRMENT
     Dosage: 60 MG, 1X/DAY
     Route: 048
     Dates: start: 20020101, end: 20080808
  5. METOPROLOL [Interacting]
     Indication: HYPERTENSION
     Dosage: 100 MG, 2X/DAY
     Route: 048
     Dates: start: 19990101
  6. ACETYLSALICYLIC ACID [Concomitant]
     Indication: ISCHAEMIC HEART DISEASE PROPHYLAXIS
     Dosage: 100 MG, 1X/DAY
     Route: 048
     Dates: start: 20020101
  7. PANTOZOL [Concomitant]
     Indication: PROPHYLAXIS AGAINST GASTROINTESTINAL ULCER
     Dosage: 40 MG, 1X/DAY
     Route: 048
     Dates: start: 20020101
  8. SIMVASTATIN [Concomitant]
     Indication: HYPERLIPIDAEMIA
     Dosage: 40 MG, 1X/DAY
     Route: 048
     Dates: start: 20020101
  9. XIPAMIDE [Concomitant]
     Indication: HYPERTENSION
     Dosage: 20 MG, 2X/DAY
     Route: 048
     Dates: start: 20000101

REACTIONS (3)
  - DRUG INTERACTION [None]
  - HYPOGLYCAEMIA [None]
  - RENAL FAILURE ACUTE [None]
